FAERS Safety Report 23100812 (Version 1)
Quarter: 2023Q4

REPORT INFORMATION
  Report Type: Spontaneous
  Country: US (occurrence: None)
  Receive Date: 20231021
  Receipt Date: 20231021
  Transmission Date: 20240109
  Serious: Yes (Hospitalization)
  Sender: FDA-Public Use
  Company Number: None

PATIENT
  Age: 56 Year
  Sex: Male
  Weight: 149 kg

DRUGS (1)
  1. ALLOPURINOL [Suspect]
     Active Substance: ALLOPURINOL
     Dosage: OTHER FREQUENCY : AM;?
     Route: 048
     Dates: start: 20230101, end: 20230214

REACTIONS (16)
  - Blood creatinine increased [None]
  - Erythema multiforme [None]
  - Pyrexia [None]
  - Hypotension [None]
  - Liver function test increased [None]
  - Pruritus [None]
  - Tachycardia [None]
  - Oral herpes [None]
  - Chills [None]
  - Malaise [None]
  - Drug reaction with eosinophilia and systemic symptoms [None]
  - Stevens-Johnson syndrome [None]
  - Toxic epidermal necrolysis [None]
  - Rash maculo-papular [None]
  - Oral pain [None]
  - Stomatitis [None]

NARRATIVE: CASE EVENT DATE: 20230206
